FAERS Safety Report 7625950-4 (Version None)
Quarter: 2011Q3

REPORT INFORMATION
  Report Type: 
  Country: None (occurrence: None)
  Receive Date: 20110721
  Receipt Date: 20110721
  Transmission Date: 20111222
  Serious: Yes (Hospitalization)
  Sender: FDA-Public Use
  Company Number: None

PATIENT
  Age: 42 Year
  Sex: Female
  Weight: 86.182 kg

DRUGS (1)
  1. TRANSDERM SCOP [Suspect]
     Indication: NAUSEA
     Dosage: 1 PATCH
     Route: 003
     Dates: start: 20110716, end: 20110718

REACTIONS (9)
  - VISION BLURRED [None]
  - HEADACHE [None]
  - NAUSEA [None]
  - FEAR [None]
  - DIZZINESS [None]
  - DISSOCIATION [None]
  - FLUSHING [None]
  - CONFUSIONAL STATE [None]
  - PARAESTHESIA [None]
